FAERS Safety Report 11863301 (Version 2)
Quarter: 2016Q1

REPORT INFORMATION
  Report Type: Spontaneous
  Country: US (occurrence: US)
  Receive Date: 20151223
  Receipt Date: 20160226
  Transmission Date: 20160526
  Serious: Yes (Death, Hospitalization)
  Sender: FDA-Public Use
  Company Number: US-ROCHE-1682618

PATIENT
  Sex: Male

DRUGS (1)
  1. XELODA [Suspect]
     Active Substance: CAPECITABINE
     Indication: BLADDER CANCER
     Dosage: X 14 DAYS THEN OFF 7 DAYS
     Route: 048
     Dates: start: 20131026, end: 20151217

REACTIONS (2)
  - Dyspnoea [Unknown]
  - Eating disorder [Unknown]
